FAERS Safety Report 5670119-6 (Version None)
Quarter: 2008Q1

REPORT INFORMATION
  Report Type: 
  Country: None (occurrence: None)
  Receive Date: 20080317
  Receipt Date: 20080304
  Transmission Date: 20080703
  Serious: Yes (Hospitalization)
  Sender: FDA-Public Use
  Company Number: CA-AMGEN-US262448

PATIENT
  Sex: Female
  Weight: 74 kg

DRUGS (12)
  1. ARANESP [Suspect]
     Indication: RENAL FAILURE CHRONIC
     Route: 058
     Dates: start: 20070926, end: 20080117
  2. NORVASC [Concomitant]
     Route: 048
     Dates: start: 20070403
  3. LIPITOR [Concomitant]
     Route: 048
     Dates: start: 20061020
  4. MONOCOR [Concomitant]
     Route: 048
     Dates: start: 20070718
  5. CALCITRIOL [Concomitant]
  6. CALCIUM [Concomitant]
     Route: 048
  7. FERROUS GLUCONATE [Concomitant]
     Route: 048
  8. LASIX [Concomitant]
     Route: 048
     Dates: start: 20070403
  9. KAYEXALATE [Concomitant]
     Route: 048
  10. MICARDIS [Concomitant]
     Route: 048
     Dates: start: 20070125
  11. WARFARIN SODIUM [Concomitant]
     Route: 048
     Dates: start: 20070926
  12. TYLENOL (CAPLET) [Concomitant]
     Route: 048

REACTIONS (14)
  - ACUTE MYOCARDIAL INFARCTION [None]
  - ANAEMIA MACROCYTIC [None]
  - AORTIC VALVE INCOMPETENCE [None]
  - APLASIA PURE RED CELL [None]
  - ARTHRITIS [None]
  - ATRIAL TACHYCARDIA [None]
  - CELLULITIS [None]
  - ESCHERICHIA SEPSIS [None]
  - GAIT DISTURBANCE [None]
  - MITRAL VALVE INCOMPETENCE [None]
  - PRESYNCOPE [None]
  - SUPRAVENTRICULAR TACHYCARDIA [None]
  - UPPER RESPIRATORY TRACT INFECTION [None]
  - UROSEPSIS [None]
